FAERS Safety Report 8954138 (Version 5)
Quarter: 2013Q2

REPORT INFORMATION
  Report Type: Spontaneous
  Country: GB (occurrence: GB)
  Receive Date: 20121207
  Receipt Date: 20130610
  Transmission Date: 20140414
  Serious: Yes (Hospitalization, Other)
  Sender: FDA-Public Use
  Company Number: GB-JNJFOC-2002094940GB

PATIENT
  Age: 45 Year
  Sex: Female

DRUGS (3)
  1. MOTRIN [Suspect]
     Indication: ARTHRITIS
     Dosage: DAILY DOSE TEXT: 1200 MG/DAILY DAILY DOSE QTY: 1200 MG
     Route: 048
  2. CLOZAPINE [Suspect]
     Indication: SCHIZOPHRENIA
     Dosage: DAILY DOSE TEXT: 300 MG/DAILY DAILY DOSE QTY: 300 MG
     Route: 048
     Dates: start: 20010925, end: 20011024
  3. PAROXETINE [Suspect]
     Indication: DEPRESSION
     Dosage: DAILY DOSE TEXT: 20 MG/DAILY DAILY DOSE QTY: 20 MG
     Route: 048

REACTIONS (12)
  - Gamma-glutamyltransferase increased [Recovering/Resolving]
  - Hepatitis [Recovered/Resolved]
  - Hyperglycaemia [Recovered/Resolved]
  - Diarrhoea [Recovered/Resolved]
  - Dehydration [Recovered/Resolved]
  - Hypomania [Recovered/Resolved]
  - Hepatic function abnormal [Recovered/Resolved]
  - Alanine aminotransferase increased [Recovering/Resolving]
  - Blood alkaline phosphatase increased [Recovering/Resolving]
  - Blood bilirubin increased [Recovering/Resolving]
  - Blood glucose increased [Unknown]
  - Asthenia [Recovering/Resolving]
